FAERS Safety Report 25421594 (Version 2)
Quarter: 2025Q2

REPORT INFORMATION
  Report Type: Report from Study
  Country: PE (occurrence: PE)
  Receive Date: 20250611
  Receipt Date: 20250613
  Transmission Date: 20250717
  Serious: Yes (Hospitalization, Other)
  Sender: BIOVITRUM
  Company Number: PE-AstraZeneca-CH-00879027A

PATIENT
  Age: 10 Month
  Sex: Female

DRUGS (1)
  1. PALIVIZUMAB [Suspect]
     Active Substance: PALIVIZUMAB
     Indication: Antiviral prophylaxis
     Route: 030
     Dates: start: 20240905

REACTIONS (4)
  - Cough [Unknown]
  - Pyrexia [Unknown]
  - Pneumonia [Unknown]
  - Bronchitis [Unknown]

NARRATIVE: CASE EVENT DATE: 20250524
